FAERS Safety Report 9661094 (Version 1)
Quarter: 2013Q4

REPORT INFORMATION
  Report Type: Spontaneous
  Country: IL (occurrence: None)
  Receive Date: 20131030
  Receipt Date: 20131030
  Transmission Date: 20140711
  Serious: No
  Sender: FDA-Public Use
  Company Number: COL_14563_2013

PATIENT
  Sex: Male

DRUGS (1)
  1. COLGATE ANTICAVITY TOOTHPASTE [Suspect]
     Indication: DENTAL CARIES
     Route: 048
     Dates: start: 2012, end: 2012

REACTIONS (1)
  - Hypersensitivity [None]
